FAERS Safety Report 5825353-9 (Version None)
Quarter: 2008Q3

REPORT INFORMATION
  Report Type: 
  Country: None (occurrence: None)
  Receive Date: 20080729
  Receipt Date: 20080716
  Transmission Date: 20090109
  Serious: Yes (Hospitalization)
  Sender: FDA-Public Use
  Company Number: AT-ASTRAZENECA-2008PK01619

PATIENT
  Age: 22132 Day
  Sex: Female

DRUGS (6)
  1. ARIMIDEX [Suspect]
     Indication: BREAST CANCER
     Route: 048
     Dates: start: 20030101, end: 20060601
  2. ARIMIDEX [Suspect]
     Route: 048
     Dates: start: 20060711
  3. AMLODIPINE [Concomitant]
     Indication: HYPERTENSION
     Route: 048
  4. BEXOLIP [Concomitant]
     Indication: HYPERLIPIDAEMIA
     Route: 048
  5. ALENDRONAT [Concomitant]
     Indication: OSTEOPOROSIS
     Route: 048
  6. CAL-D-VITA [Concomitant]
     Indication: OSTEOPOROSIS

REACTIONS (2)
  - ANKLE FRACTURE [None]
  - CONTUSION [None]
